FAERS Safety Report 24907427 (Version 1)
Quarter: 2025Q1

REPORT INFORMATION
  Report Type: Spontaneous
  Country: CN (occurrence: CN)
  Receive Date: 20250130
  Receipt Date: 20250130
  Transmission Date: 20250408
  Serious: No
  Sender: MERCK
  Company Number: CN-009507513-2501CHN009216

PATIENT

DRUGS (13)
  1. MOLNUPIRAVIR [Suspect]
     Active Substance: MOLNUPIRAVIR
     Indication: Antiviral treatment
     Route: 048
     Dates: start: 202403
  2. CASPOFUNGIN ACETATE [Concomitant]
     Active Substance: CASPOFUNGIN ACETATE
     Indication: Antifungal treatment
     Dates: start: 20240116
  3. MEROPENEM [Concomitant]
     Active Substance: MEROPENEM
     Indication: Antibiotic therapy
     Dates: start: 202402, end: 202403
  4. MEROPENEM [Concomitant]
     Active Substance: MEROPENEM
     Dates: start: 202403
  5. SULFAMETHOXAZOLE [Concomitant]
     Active Substance: SULFAMETHOXAZOLE
     Indication: Antifungal treatment
     Dates: start: 202401
  6. VORICONAZOLE [Concomitant]
     Active Substance: VORICONAZOLE
     Indication: Antifungal treatment
     Dates: start: 202403
  7. ACYCLOVIR [Concomitant]
     Active Substance: ACYCLOVIR
     Indication: Antiviral treatment
     Dates: start: 202401
  8. VALGANCICLOVIR [Concomitant]
     Active Substance: VALGANCICLOVIR
     Indication: Antiviral treatment
     Dates: start: 202403
  9. RIBAVIRIN [Concomitant]
     Active Substance: RIBAVIRIN
     Indication: Antiviral treatment
     Dates: start: 202402, end: 202403
  10. RUXOLITINIB [Concomitant]
     Active Substance: RUXOLITINIB
     Indication: Immune effector cell-associated HLH-like syndrome
     Dosage: 10 MILLIGRAM, BID
     Dates: start: 202402
  11. DEXAMETHASONE [Concomitant]
     Active Substance: DEXAMETHASONE
     Indication: Immune effector cell-associated HLH-like syndrome
     Dosage: 10 MILLIGRAM, QD
     Dates: start: 202402
  12. GRANULOCYTE COLONY-STIMULATING FACTOR NOS [Concomitant]
     Active Substance: GRANULOCYTE COLONY-STIMULATING FACTOR NOS
     Indication: Immune effector cell-associated HLH-like syndrome
     Dates: start: 202402
  13. ELTROMBOPAG OLAMINE [Concomitant]
     Active Substance: ELTROMBOPAG OLAMINE
     Indication: Immune effector cell-associated HLH-like syndrome
     Dates: start: 2024

REACTIONS (1)
  - Product use issue [Unknown]

NARRATIVE: CASE EVENT DATE: 20240301
